FAERS Safety Report 7998690-X (Version None)
Quarter: 2011Q4

REPORT INFORMATION
  Report Type: 
  Country: None (occurrence: None)
  Receive Date: 20111221
  Receipt Date: 20111213
  Transmission Date: 20120403
  Serious: Yes (Hospitalization)
  Sender: FDA-Public Use
  Company Number: US-BAYER-201021022NA

PATIENT
  Age: 34 Year
  Sex: Female
  Weight: 59.864 kg

DRUGS (8)
  1. AZITHROMYCIN [Concomitant]
  2. PROPO-N/APAP [Concomitant]
  3. YAZ [Suspect]
     Indication: CONTRACEPTION
     Dosage: UNK
     Route: 048
     Dates: start: 20080701, end: 20090901
  4. IBUPROFEN (ADVIL) [Concomitant]
  5. YAZ [Suspect]
     Indication: PREMENSTRUAL SYNDROME
  6. PANTOPRAZOLE [Concomitant]
  7. YAZ [Suspect]
     Indication: ACNE
  8. PROTONIX [Concomitant]
     Indication: EPIGASTRIC DISCOMFORT

REACTIONS (7)
  - ANHEDONIA [None]
  - ANXIETY [None]
  - PAIN [None]
  - EMOTIONAL DISTRESS [None]
  - ABDOMINAL PAIN [None]
  - INJURY [None]
  - CHOLECYSTITIS CHRONIC [None]
